FAERS Safety Report 8025213-1 (Version None)
Quarter: 2012Q1

REPORT INFORMATION
  Report Type: 
  Country: None (occurrence: None)
  Receive Date: 20120105
  Receipt Date: 20111222
  Transmission Date: 20120608
  Serious: Yes (Other)
  Sender: FDA-Public Use
  Company Number: DE-GLAXOSMITHKLINE-D0073977A

PATIENT
  Sex: Female

DRUGS (1)
  1. ATMADISC [Suspect]
     Route: 055

REACTIONS (1)
  - GESTATIONAL DIABETES [None]
